FAERS Safety Report 6832596-4 (Version None)
Quarter: 2010Q3

REPORT INFORMATION
  Report Type: 
  Country: None (occurrence: None)
  Receive Date: 20100712
  Receipt Date: 20070317
  Transmission Date: 20110219
  Serious: No
  Sender: FDA-Public Use
  Company Number: US-PFIZER INC-2007021537

PATIENT
  Sex: Male
  Weight: 81.65 kg

DRUGS (2)
  1. CHANTIX [Suspect]
     Indication: EX-TOBACCO USER
     Dates: start: 20070312
  2. DILANTIN [Interacting]
     Indication: CONVULSION

REACTIONS (4)
  - DRUG INTERACTION [None]
  - FEELING COLD [None]
  - INSOMNIA [None]
  - TREMOR [None]
